FAERS Safety Report 7393025-8 (Version None)
Quarter: 2011Q2

REPORT INFORMATION
  Report Type: 
  Country: None (occurrence: None)
  Receive Date: 20110404
  Receipt Date: 20110329
  Transmission Date: 20111010
  Serious: Yes (Death)
  Sender: FDA-Public Use
  Company Number: DE-BAXTER-2011BH008692

PATIENT

DRUGS (9)
  1. CYCLOPHOSPHAMIDE [Suspect]
     Indication: HODGKIN'S DISEASE
     Route: 042
  2. CYTARABINE [Suspect]
     Indication: HODGKIN'S DISEASE
     Route: 042
  3. LEUCOVORIN [Suspect]
     Indication: HODGKIN'S DISEASE
     Route: 065
  4. METHOTREXATE [Suspect]
     Indication: HODGKIN'S DISEASE
     Route: 042
  5. CARMUSTINE [Suspect]
     Indication: HODGKIN'S DISEASE
     Route: 042
  6. ETOPOSIDE [Suspect]
     Indication: HODGKIN'S DISEASE
     Route: 042
  7. MELPHALAN [Suspect]
     Indication: HODGKIN'S DISEASE
     Route: 042
  8. UROMITEXAN [Concomitant]
     Indication: PROPHYLAXIS
     Route: 042
  9. GRANULOCYTE COLONY STIMULATING FACTOR [Suspect]
     Indication: HODGKIN'S DISEASE
     Route: 058

REACTIONS (1)
  - METASTASIS [None]
